FAERS Safety Report 24933876 (Version 1)
Quarter: 2025Q1

REPORT INFORMATION
  Report Type: Report from Study
  Country: US (occurrence: US)
  Receive Date: 20250206
  Receipt Date: 20250206
  Transmission Date: 20250409
  Serious: Yes (Death, Hospitalization, Other)
  Sender: EXELIXIS
  Company Number: US-EXELIXIS-CABO-24075474

PATIENT
  Age: 61 Year
  Sex: Male

DRUGS (16)
  1. CABOMETYX [Suspect]
     Active Substance: CABOZANTINIB S-MALATE
     Indication: Hepatocellular carcinoma
     Dosage: 40 MG, QD
     Route: 048
     Dates: start: 20230815
  2. CABOMETYX [Suspect]
     Active Substance: CABOZANTINIB S-MALATE
     Dates: end: 20231122
  3. CHRONULAC [Concomitant]
     Active Substance: LACTULOSE
  4. ATIVAN [Concomitant]
     Active Substance: LORAZEPAM
     Indication: Anxiety
  5. ROXANOL [Concomitant]
     Active Substance: MORPHINE SULFATE
     Indication: Pain
  6. XIFAXAN [Concomitant]
     Active Substance: RIFAXIMIN
  7. SENOKOT-S [Concomitant]
     Active Substance: DOCUSATE SODIUM\SENNOSIDES
     Indication: Constipation
  8. MAALOX ANTACID [Concomitant]
     Active Substance: ALUMINUM HYDROXIDE\DIMETHICONE\MAGNESIUM HYDROXIDE
  9. SODIUM HYPOCHLORITE [Concomitant]
     Active Substance: SODIUM HYPOCHLORITE
  10. VITAMINS [Concomitant]
     Active Substance: VITAMINS
  11. NARCAN [Concomitant]
     Active Substance: NALOXONE HYDROCHLORIDE
  12. OXYCODONE HYDROCHLORIDE [Concomitant]
     Active Substance: OXYCODONE HYDROCHLORIDE
  13. FOLVITE [Concomitant]
     Active Substance: FOLIC ACID
  14. LASIX [Concomitant]
     Active Substance: FUROSEMIDE
  15. ALDACTONE [Concomitant]
     Active Substance: SPIRONOLACTONE
  16. ROXICODONE [Concomitant]
     Active Substance: OXYCODONE HYDROCHLORIDE
     Indication: Cancer pain

REACTIONS (20)
  - Thrombocytopenia [Unknown]
  - Acute kidney injury [Fatal]
  - Ascites [Unknown]
  - Hepatic cirrhosis [Unknown]
  - Hepatic encephalopathy [Unknown]
  - Hyperkalaemia [Unknown]
  - Metastases to pancreas [Unknown]
  - Fatigue [Unknown]
  - Hypertension [Unknown]
  - Diarrhoea [Unknown]
  - Hypoalbuminaemia [Unknown]
  - Hypocalcaemia [Unknown]
  - Malnutrition [Unknown]
  - Neoplasm recurrence [Unknown]
  - Capillary disorder [Unknown]
  - Localised infection [Unknown]
  - Scrotal swelling [Unknown]
  - Skin ulcer [Unknown]
  - Impaired healing [Unknown]
  - Dry mouth [Unknown]

NARRATIVE: CASE EVENT DATE: 20231121
